FAERS Safety Report 12694193 (Version 1)
Quarter: 2016Q3

REPORT INFORMATION
  Report Type: Spontaneous
  Country: EG (occurrence: EG)
  Receive Date: 20160829
  Receipt Date: 20160829
  Transmission Date: 20161109
  Serious: Yes (Life-Threatening, Other)
  Sender: FDA-Public Use
  Company Number: EG-NOVOPROD-506302

PATIENT
  Sex: Male

DRUGS (1)
  1. MIXTARD PENFILL [Suspect]
     Active Substance: INSULIN HUMAN
     Indication: PRODUCT USED FOR UNKNOWN INDICATION
     Dosage: UNK
     Route: 065

REACTIONS (2)
  - Joint dislocation [Not Recovered/Not Resolved]
  - Seizure [Unknown]
